FAERS Safety Report 7333240 (Version 36)
Quarter: 2021Q1

REPORT INFORMATION
  Report Type: Report from Study
  Country: CA (occurrence: CA)
  Receive Date: 20100326
  Receipt Date: 20210322
  Transmission Date: 20210420
  Serious: Yes (Other)
  Sender: FDA-Public Use
  Company Number: PHHY2010CA16427

PATIENT
  Age: 63 Year
  Sex: Male

DRUGS (20)
  1. SANDOSTATIN LAR DEPOT [Suspect]
     Active Substance: OCTREOTIDE ACETATE
     Dosage: 20 MG, QMO
     Route: 030
     Dates: start: 20100217, end: 20100317
  2. SANDOSTATIN LAR DEPOT [Suspect]
     Active Substance: OCTREOTIDE ACETATE
     Dosage: 20 MG, QMO
     Route: 030
     Dates: start: 20110420
  3. SANDOSTATIN LAR DEPOT [Suspect]
     Active Substance: OCTREOTIDE ACETATE
     Dosage: 30 MG, QMO
     Route: 030
     Dates: start: 20140331
  4. SANDOSTATIN LAR DEPOT [Suspect]
     Active Substance: OCTREOTIDE ACETATE
     Dosage: 30 MG, QMO
     Route: 030
     Dates: start: 20100217
  5. SANDOSTATIN LAR DEPOT [Suspect]
     Active Substance: OCTREOTIDE ACETATE
     Dosage: 40 MG, QMO
     Route: 030
     Dates: start: 20140227
  6. NOVORAPID [Concomitant]
     Active Substance: INSULIN ASPART
     Indication: PRODUCT USED FOR UNKNOWN INDICATION
     Dosage: UNK
     Route: 065
  7. CITALOPRAM [Concomitant]
     Active Substance: CITALOPRAM HYDROBROMIDE
     Indication: PRODUCT USED FOR UNKNOWN INDICATION
     Dosage: 20 MG, QD (EVERY MORNING)
     Route: 065
  8. DOSTINEX [Concomitant]
     Active Substance: CABERGOLINE
     Indication: PRODUCT USED FOR UNKNOWN INDICATION
     Dosage: 0.5 MG, BIW  (SUNDAYS AND THURSDAYS)
     Route: 065
  9. SANDOSTATIN LAR DEPOT [Suspect]
     Active Substance: OCTREOTIDE ACETATE
     Indication: ACROMEGALY
     Dosage: 30 MG, QMO
     Route: 030
     Dates: start: 20100120
  10. SANDOSTATIN LAR DEPOT [Suspect]
     Active Substance: OCTREOTIDE ACETATE
     Dosage: 30 MG, QMO
     Route: 030
     Dates: start: 20200507
  11. SYNTHROID [Concomitant]
     Active Substance: LEVOTHYROXINE SODIUM
     Dosage: 75 UG, QD
     Route: 048
  12. SANDOSTATIN LAR DEPOT [Suspect]
     Active Substance: OCTREOTIDE ACETATE
     Dosage: 30 MG, QMO
     Route: 030
     Dates: start: 20131014
  13. SANDOSTATIN LAR DEPOT [Suspect]
     Active Substance: OCTREOTIDE ACETATE
     Dosage: 30 MG, QMO
     Route: 030
     Dates: start: 20140628
  14. APO PIOGLITAZONE [Concomitant]
     Indication: DIABETES MELLITUS
     Dosage: UNK
     Route: 065
  15. SANDOSTATIN LAR DEPOT [Suspect]
     Active Substance: OCTREOTIDE ACETATE
     Dosage: 10 MG, QMO
     Route: 030
     Dates: start: 20110203
  16. LEVEMIR [Concomitant]
     Active Substance: INSULIN DETEMIR
     Indication: PRODUCT USED FOR UNKNOWN INDICATION
     Route: 065
  17. SYNTHROID [Concomitant]
     Active Substance: LEVOTHYROXINE SODIUM
     Indication: PRODUCT USED FOR UNKNOWN INDICATION
     Dosage: 0.075 MG, QD
     Route: 065
  18. METFORMIN [Concomitant]
     Active Substance: METFORMIN HYDROCHLORIDE
     Indication: PRODUCT USED FOR UNKNOWN INDICATION
     Route: 065
  19. NORVASC [Concomitant]
     Active Substance: AMLODIPINE BESYLATE
     Indication: PRODUCT USED FOR UNKNOWN INDICATION
     Route: 065
  20. ASA [Concomitant]
     Active Substance: ASPIRIN
     Indication: PRODUCT USED FOR UNKNOWN INDICATION
     Route: 065

REACTIONS (38)
  - Alopecia [Unknown]
  - Pruritus [Unknown]
  - Blood pressure increased [Unknown]
  - Blood glucose decreased [Unknown]
  - Blood growth hormone increased [Unknown]
  - Fatigue [Not Recovered/Not Resolved]
  - Blood pressure systolic increased [Unknown]
  - Loss of consciousness [Unknown]
  - Somnolence [Unknown]
  - Injection site pain [Unknown]
  - Faeces discoloured [Unknown]
  - Abdominal distension [Not Recovered/Not Resolved]
  - Respiratory rate increased [Unknown]
  - Erythema [Unknown]
  - Depression [Unknown]
  - Needle issue [Unknown]
  - Back pain [Unknown]
  - Decreased appetite [Unknown]
  - Gastrointestinal pain [Unknown]
  - Diarrhoea [Not Recovered/Not Resolved]
  - Asthenia [Unknown]
  - Hypersomnia [Not Recovered/Not Resolved]
  - Flatulence [Not Recovered/Not Resolved]
  - Abdominal discomfort [Unknown]
  - Limb injury [Unknown]
  - Blood cholesterol increased [Unknown]
  - Cortisol decreased [Unknown]
  - Hyperhidrosis [Unknown]
  - Injection site haemorrhage [Unknown]
  - Amnesia [Unknown]
  - Blood glucose fluctuation [Unknown]
  - Anxiety [Unknown]
  - Underdose [Unknown]
  - Heart rate decreased [Unknown]
  - Blood pressure decreased [Unknown]
  - Arthralgia [Unknown]
  - Oedema peripheral [Unknown]
  - Weight increased [Unknown]

NARRATIVE: CASE EVENT DATE: 2014
